FAERS Safety Report 11868907 (Version 2)
Quarter: 2016Q1

REPORT INFORMATION
  Report Type: Spontaneous
  Country: FR (occurrence: FR)
  Receive Date: 20151225
  Receipt Date: 20160202
  Transmission Date: 20160526
  Serious: Yes (Other)
  Sender: FDA-Public Use
  Company Number: FR-ROCHE-1684376

PATIENT
  Age: 38 Year
  Sex: Female

DRUGS (5)
  1. XOLAIR [Suspect]
     Active Substance: OMALIZUMAB
     Dosage: 300 MG, (150 MG TWICE IN EACH THIGH).
     Route: 058
     Dates: start: 20151215
  2. XYZALL [Concomitant]
     Active Substance: LEVOCETIRIZINE DIHYDROCHLORIDE
  3. XOLAIR [Suspect]
     Active Substance: OMALIZUMAB
     Route: 058
     Dates: start: 20151013, end: 20151013
  4. XOLAIR [Suspect]
     Active Substance: OMALIZUMAB
     Indication: CHRONIC SPONTANEOUS URTICARIA
     Route: 058
     Dates: start: 20150715
  5. XOLAIR [Suspect]
     Active Substance: OMALIZUMAB
     Dosage: 150 MG, (IN EACH ARM).
     Route: 058
     Dates: start: 20151117, end: 20151117

REACTIONS (8)
  - Pigmentation disorder [Unknown]
  - Dysphagia [Recovered/Resolved]
  - Palpitations [Recovered/Resolved]
  - Pharyngeal oedema [Recovered/Resolved]
  - Anxiety [Recovered/Resolved]
  - Dyspnoea [Recovered/Resolved]
  - Injection site reaction [Recovered/Resolved with Sequelae]
  - Injection site urticaria [Unknown]

NARRATIVE: CASE EVENT DATE: 20151013
